FAERS Safety Report 20591011 (Version 1)
Quarter: 2022Q1

REPORT INFORMATION
  Report Type: Spontaneous
  Country: US (occurrence: US)
  Receive Date: 20220314
  Receipt Date: 20220314
  Transmission Date: 20220423
  Serious: Yes (Hospitalization)
  Sender: FDA-Public Use
  Company Number: US-BIOMARINAP-US-2022-141961

PATIENT
  Age: 16 Year
  Sex: Male

DRUGS (2)
  1. VIMIZIM [Suspect]
     Active Substance: ELOSULFASE ALFA
     Indication: Mucopolysaccharidosis IV
     Dosage: 100 MILLIGRAM, QW
     Route: 042
     Dates: start: 202111
  2. VIMIZIM [Suspect]
     Active Substance: ELOSULFASE ALFA
     Dosage: 100 MILLIGRAM, QW
     Route: 042
     Dates: start: 20160323

REACTIONS (2)
  - Tachycardia [Unknown]
  - Pyrexia [Unknown]

NARRATIVE: CASE EVENT DATE: 20220301
